FAERS Safety Report 10733369 (Version 1)
Quarter: 2015Q1

REPORT INFORMATION
  Report Type: Spontaneous
  Country: US (occurrence: US)
  Receive Date: 20150123
  Receipt Date: 20150123
  Transmission Date: 20150721
  Serious: Yes (Hospitalization, Other)
  Sender: FDA-Public Use
  Company Number: US-BAYER-2015-007445

PATIENT
  Age: 48 Year
  Sex: Male
  Weight: 86.17 kg

DRUGS (2)
  1. BAYER GENUINE ASPIRIN [Suspect]
     Active Substance: ASPIRIN
     Indication: PYREXIA
     Dosage: 2 DF, EVERY 4 HOURS AS NEEDED
     Route: 048
     Dates: end: 1999
  2. BAYER GENUINE ASPIRIN [Suspect]
     Active Substance: ASPIRIN
     Indication: PAIN

REACTIONS (7)
  - Incorrect drug administration duration [None]
  - Gastric ulcer haemorrhage [Recovered/Resolved]
  - Drug administered to patient of inappropriate age [None]
  - Abdominal pain upper [Recovered/Resolved]
  - Haematochezia [Recovered/Resolved]
  - Haematemesis [Recovered/Resolved]
  - Gastritis [Recovered/Resolved]

NARRATIVE: CASE EVENT DATE: 1999
